FAERS Safety Report 21856257 (Version 2)
Quarter: 2023Q1

REPORT INFORMATION
  Report Type: Spontaneous
  Country: US (occurrence: US)
  Receive Date: 20230112
  Receipt Date: 20230209
  Transmission Date: 20230417
  Serious: No
  Sender: FDA-Public Use
  Company Number: US-JNJFOC-20230118996

PATIENT
  Age: 38 Year
  Sex: Female

DRUGS (4)
  1. ULTRAM [Suspect]
     Active Substance: TRAMADOL HYDROCHLORIDE
     Indication: Headache
     Route: 065
     Dates: start: 202212
  2. REMODULIN [Suspect]
     Active Substance: TREPROSTINIL
     Indication: Pulmonary arterial hypertension
     Route: 041
     Dates: start: 202006
  3. REMODULIN [Suspect]
     Active Substance: TREPROSTINIL
     Route: 041
     Dates: start: 202212
  4. REMODULIN [Suspect]
     Active Substance: TREPROSTINIL
     Route: 041

REACTIONS (1)
  - Drug ineffective [Unknown]

NARRATIVE: CASE EVENT DATE: 20221201
